FAERS Safety Report 7490014-X (Version None)
Quarter: 2011Q2

REPORT INFORMATION
  Report Type: 
  Country: None (occurrence: None)
  Receive Date: 20110517
  Receipt Date: 20110517
  Transmission Date: 20111010
  Serious: Yes (Life-Threatening, Hospitalization)
  Sender: FDA-Public Use
  Company Number: None

PATIENT
  Age: 50 Year
  Sex: Female
  Weight: 58.9676 kg

DRUGS (1)
  1. ALBUTEROL [Suspect]
     Indication: CHEST DISCOMFORT
     Dosage: AS NEEDED USED ONE PUFF PO
     Route: 048
     Dates: start: 20110426, end: 20110426

REACTIONS (8)
  - EYE MOVEMENT DISORDER [None]
  - GRUNTING [None]
  - CONVULSION [None]
  - SCREAMING [None]
  - TREMOR [None]
  - SPEECH DISORDER [None]
  - VISUAL IMPAIRMENT [None]
  - PRODUCT LABEL ISSUE [None]
